FAERS Safety Report 7579222-7 (Version None)
Quarter: 2011Q2

REPORT INFORMATION
  Report Type: 
  Country: None (occurrence: None)
  Receive Date: 20110628
  Receipt Date: 20110615
  Transmission Date: 20111010
  Serious: Yes (Hospitalization, Other)
  Sender: FDA-Public Use
  Company Number: GB-ELI_LILLY_AND_COMPANY-GB201102004917

PATIENT
  Weight: 2.4 kg

DRUGS (6)
  1. VENLAFAXINE [Concomitant]
     Route: 064
  2. VENLAFAXINE [Concomitant]
     Route: 064
  3. ZYPREXA [Suspect]
     Route: 064
  4. MIRTAZAPINE [Concomitant]
     Route: 064
  5. ZYPREXA [Suspect]
     Route: 064
  6. MIRTAZAPINE [Concomitant]
     Route: 064

REACTIONS (7)
  - VOMITING [None]
  - RESTLESSNESS [None]
  - COUGH [None]
  - FEEDING DISORDER NEONATAL [None]
  - DRUG EXPOSURE VIA BREAST MILK [None]
  - DRUG EXPOSURE DURING PREGNANCY [None]
  - AGITATION NEONATAL [None]
